FAERS Safety Report 24429382 (Version 1)
Quarter: 2024Q4

REPORT INFORMATION
  Report Type: Spontaneous
  Country: BR (occurrence: BR)
  Receive Date: 20241011
  Receipt Date: 20241011
  Transmission Date: 20250115
  Serious: Yes (Death, Other)
  Sender: GILEAD
  Company Number: BR-GSK-BR2024AMR123230

PATIENT

DRUGS (1)
  1. AMBRISENTAN [Suspect]
     Active Substance: AMBRISENTAN
     Indication: Pulmonary arterial hypertension
     Dosage: 2 DOSAGE FORM, QD~2 DF, QD FROM 5 TO 10 MG
     Route: 065
     Dates: start: 202406, end: 202406

REACTIONS (2)
  - Death [Fatal]
  - Product availability issue [Unknown]
